FAERS Safety Report 17943884 (Version 5)
Quarter: 2020Q3

REPORT INFORMATION
  Report Type: Spontaneous
  Country: AT (occurrence: AT)
  Receive Date: 20200625
  Receipt Date: 20200717
  Transmission Date: 20201103
  Serious: Yes (Hospitalization, Other)
  Sender: FDA-Public Use
  Company Number: NVSC2020AT176769

PATIENT
  Sex: Male
  Weight: 1.3 kg

DRUGS (5)
  1. VALACICLOVIR [Suspect]
     Active Substance: VALACYCLOVIR HYDROCHLORIDE
     Dosage: MATERNAL DOSE: 8 G, QD
     Route: 064
  2. GANCICLOVIR. [Concomitant]
     Active Substance: GANCICLOVIR
     Indication: FOETAL EXPOSURE DURING PREGNANCY
     Dosage: MATERNAL DOSE: 12 MG/KG, Q2W FOR 2 WEEKS
     Route: 064
  3. VALGANCICLOVIR. [Suspect]
     Active Substance: VALGANCICLOVIR
     Dosage: MATERNAL DOSE: 32 MG/KG FOR 6 WEEKS (DUE TO NEUTROPENIA THE DOSE WAS HALVED, AND THE DURATION OF THE
     Route: 064
  4. VALACICLOVIR [Suspect]
     Active Substance: VALACYCLOVIR HYDROCHLORIDE
     Indication: FOETAL EXPOSURE DURING PREGNANCY
     Dosage: MATERNAL DOSE: 400 MG, BID
     Route: 064
  5. VALGANCICLOVIR. [Suspect]
     Active Substance: VALGANCICLOVIR
     Indication: FOETAL EXPOSURE DURING PREGNANCY
     Dosage: MATERNAL DOSE: PROLONGED TO A TOTAL OF TWO MONTHS
     Route: 064

REACTIONS (5)
  - Neutropenia [Unknown]
  - Off label use [Unknown]
  - Foetal exposure during pregnancy [Recovered/Resolved]
  - Intentional product use issue [Unknown]
  - Premature baby [Recovered/Resolved]
